FAERS Safety Report 21590826 (Version 1)
Quarter: 2022Q4

REPORT INFORMATION
  Report Type: Spontaneous
  Country: CA (occurrence: CA)
  Receive Date: 20221114
  Receipt Date: 20221114
  Transmission Date: 20230112
  Serious: Yes (Other)
  Sender: FDA-Public Use
  Company Number: CA-002147023-NVSC2022CA223717

PATIENT
  Age: 66 Year
  Sex: Male
  Weight: 70 kg

DRUGS (8)
  1. OMALIZUMAB [Suspect]
     Active Substance: OMALIZUMAB
     Indication: Product used for unknown indication
     Route: 065
  2. APIXABAN [Suspect]
     Active Substance: APIXABAN
     Indication: Product used for unknown indication
     Dosage: 1 DOSAGE FORM
     Route: 065
  3. BUDESONIDE [Suspect]
     Active Substance: BUDESONIDE
     Indication: Product used for unknown indication
     Route: 065
  4. EPINEPHRINE [Suspect]
     Active Substance: EPINEPHRINE
     Indication: Anaphylactic reaction
     Route: 065
  5. PREDNISONE [Suspect]
     Active Substance: PREDNISONE
     Indication: Asthma
     Route: 065
  6. ALBUTEROL [Suspect]
     Active Substance: ALBUTEROL
     Indication: Product used for unknown indication
     Dosage: 100 UG
     Route: 065
  7. ALBUTEROL [Suspect]
     Active Substance: ALBUTEROL
     Dosage: 100 MG
     Route: 065
  8. UMECLIDINIUM BROMIDE [Suspect]
     Active Substance: UMECLIDINIUM BROMIDE
     Indication: Product used for unknown indication
     Dosage: 1 DOSAGE FORM
     Route: 065

REACTIONS (9)
  - Multiple allergies [Unknown]
  - Bronchopulmonary aspergillosis allergic [Unknown]
  - Chronic obstructive pulmonary disease [Unknown]
  - Dyspnoea [Unknown]
  - Coagulation factor deficiency [Unknown]
  - Asthma [Unknown]
  - Therapeutic product effect incomplete [Unknown]
  - Drug ineffective [Unknown]
  - Factor V Leiden mutation [Unknown]
